FAERS Safety Report 5006322-8 (Version None)
Quarter: 2006Q2

REPORT INFORMATION
  Report Type: 
  Country: None (occurrence: None)
  Receive Date: 20060519
  Receipt Date: 20060428
  Transmission Date: 20061013
  Serious: Yes (Death)
  Sender: FDA-Public Use
  Company Number: US-BRISTOL-MYERS SQUIBB COMPANY-13359880

PATIENT
  Age: 50 Year
  Sex: Male

DRUGS (7)
  1. GLUCOPHAGE [Suspect]
     Indication: DIABETES MELLITUS
     Route: 048
  2. HYDROCHLOROTHIAZIDE [Concomitant]
     Dates: start: 20030201
  3. LEVOTHYROXINE SODIUM [Concomitant]
     Dates: start: 20030201
  4. ATENOLOL [Concomitant]
     Dates: start: 20030201
  5. QUINAPRIL [Concomitant]
     Dates: start: 20030201
  6. GLYBURIDE [Concomitant]
     Dates: start: 20030201
  7. LIPITOR [Concomitant]
     Dates: start: 20030201

REACTIONS (1)
  - ACUTE MYOCARDIAL INFARCTION [None]
